FAERS Safety Report 9239359 (Version 7)
Quarter: 2015Q2

REPORT INFORMATION
  Report Type: Spontaneous
  Country: US (occurrence: US)
  Receive Date: 20130418
  Receipt Date: 20150629
  Transmission Date: 20150821
  Serious: Yes (Death, Life-Threatening, Hospitalization, Disabling, Other)
  Sender: FDA-Public Use
  Company Number: US-009507513-1304USA008227

PATIENT
  Sex: Male
  Weight: 158.28 kg

DRUGS (3)
  1. JANUVIA [Suspect]
     Active Substance: SITAGLIPTIN PHOSPHATE
     Indication: TYPE 2 DIABETES MELLITUS
     Dosage: 100 MG, QD
     Route: 048
     Dates: start: 20070514, end: 20101025
  2. BYETTA [Suspect]
     Active Substance: EXENATIDE
     Indication: TYPE 2 DIABETES MELLITUS
     Dosage: 5 MICROGRAM, BID
     Route: 048
     Dates: start: 20050830, end: 20051126
  3. BYETTA [Suspect]
     Active Substance: EXENATIDE
     Dosage: 10 MICROGRAM, BID
     Route: 048
     Dates: start: 20060506, end: 20070630

REACTIONS (28)
  - Pancreatic carcinoma metastatic [Fatal]
  - Cholelithiasis [Unknown]
  - Hepatitis [Not Recovered/Not Resolved]
  - Osteoarthritis [Unknown]
  - Erectile dysfunction [Unknown]
  - Renal disorder [Unknown]
  - General physical health deterioration [Unknown]
  - Pancreatitis acute [Recovered/Resolved]
  - Peripheral swelling [Unknown]
  - Cholecystectomy [Recovered/Resolved]
  - Bursitis [Unknown]
  - Wound [Recovering/Resolving]
  - Gallbladder disorder [Recovered/Resolved]
  - Lipase increased [Unknown]
  - Hypotension [Unknown]
  - Pulmonary mass [Unknown]
  - Abdominal pain upper [Recovered/Resolved]
  - Haemodialysis [Unknown]
  - Myocardial infarction [Unknown]
  - Squamous cell carcinoma of lung [Not Recovered/Not Resolved]
  - Pancreatitis acute [Unknown]
  - Periodontal disease [Not Recovered/Not Resolved]
  - Lung lobectomy [Unknown]
  - Acute kidney injury [Not Recovered/Not Resolved]
  - Diverticulum [Unknown]
  - Amylase increased [Unknown]
  - Hepatic cancer metastatic [Unknown]
  - Abdominal distension [Unknown]

NARRATIVE: CASE EVENT DATE: 200707
